FAERS Safety Report 6360896-3 (Version None)
Quarter: 2009Q3

REPORT INFORMATION
  Report Type: 
  Country: None (occurrence: None)
  Receive Date: 20090915
  Receipt Date: 20090915
  Transmission Date: 20100115
  Serious: Yes (Disabling)
  Sender: FDA-Public Use
  Company Number: None

PATIENT
  Age: 66 Year
  Sex: Male
  Weight: 90.7194 kg

DRUGS (2)
  1. FLONASE [Suspect]
     Indication: SINUS CONGESTION
     Dosage: 2 SPRAYS ONCE NIGHTLY INTO NOSE-GENE IN LEFT SIDE FLONASE 2WKS APRIL 2008
     Dates: start: 20080401
  2. OMNARIS [Suspect]
     Indication: SINUS CONGESTION
     Dosage: OMNANT 2 DAYS APRIL 2009
     Dates: start: 20090401

REACTIONS (2)
  - EYE IRRITATION [None]
  - GLAUCOMA [None]
